FAERS Safety Report 6015316-5 (Version None)
Quarter: 2008Q4

REPORT INFORMATION
  Report Type: 
  Country: None (occurrence: None)
  Receive Date: 20081222
  Receipt Date: 20081211
  Transmission Date: 20090506
  Serious: Yes (Other)
  Sender: FDA-Public Use
  Company Number: CA-BAYER-200840702NA

PATIENT
  Age: 61 Year
  Sex: Female
  Weight: 62 kg

DRUGS (4)
  1. SORAFENIB [Suspect]
     Indication: CERVIX CARCINOMA
     Dosage: TOTAL DAILY DOSE: 400 MG  UNIT DOSE: 200 MG
     Route: 048
     Dates: start: 20081113, end: 20081210
  2. CISPLATIN [Suspect]
     Indication: CERVIX CARCINOMA
     Dosage: TOTAL DAILY DOSE: 64.4 MG
     Route: 042
     Dates: start: 20081120
  3. MAGNESIUM SULFATE [Concomitant]
     Dates: start: 20081210
  4. FLUIDS [Concomitant]
     Dates: start: 20081210

REACTIONS (2)
  - FEMALE GENITAL TRACT FISTULA [None]
  - UROGENITAL FISTULA [None]
